FAERS Safety Report 10304334 (Version 3)
Quarter: 2014Q3

REPORT INFORMATION
  Report Type: Spontaneous
  Country: JP (occurrence: JP)
  Receive Date: 20140715
  Receipt Date: 20140815
  Transmission Date: 20150326
  Serious: Yes (Life-Threatening, Hospitalization, Other)
  Sender: FDA-Public Use
  Company Number: JP-009507513-1407JPN004342

PATIENT
  Age: 66 Year
  Sex: Female
  Weight: 58 kg

DRUGS (6)
  1. REBETOL [Suspect]
     Active Substance: RIBAVIRIN
     Indication: CHRONIC HEPATITIS C
     Dosage: 600 MG, QD
     Route: 048
     Dates: start: 20140205, end: 20140621
  2. VOGLIBOSE [Concomitant]
     Active Substance: VOGLIBOSE
     Indication: DIABETES MELLITUS
     Dosage: 0.3 MG, TID
     Route: 048
  3. SIMEPREVIR [Concomitant]
     Active Substance: SIMEPREVIR
     Dosage: DAILY DOSE UNKNOWN
     Route: 065
     Dates: start: 20140205
  4. GLACTIV [Concomitant]
     Active Substance: SITAGLIPTIN
     Indication: DIABETES MELLITUS
     Dosage: 50 MG, QD
     Route: 048
  5. PEGINTRON [Suspect]
     Active Substance: PEGINTERFERON ALFA-2B
     Indication: CHRONIC HEPATITIS C
     Dosage: 40-60 MICROGRAM/TIME, DAILY DOSAGE UNKNOWN
     Route: 058
     Dates: start: 20140205, end: 20140618
  6. METGLUCO [Concomitant]
     Active Substance: METFORMIN HYDROCHLORIDE
     Indication: DIABETES MELLITUS
     Dosage: 250 MG, BID
     Route: 048
     Dates: start: 20140507

REACTIONS (4)
  - Urinary tract infection [Recovering/Resolving]
  - Ventricular fibrillation [Recovered/Resolved]
  - Sepsis [Recovering/Resolving]
  - Torsade de pointes [Unknown]

NARRATIVE: CASE EVENT DATE: 201406
